FAERS Safety Report 8181440-4 (Version None)
Quarter: 2012Q1

REPORT INFORMATION
  Report Type: 
  Country: None (occurrence: None)
  Receive Date: 20120302
  Receipt Date: 20120224
  Transmission Date: 20120608
  Serious: Yes (Disabling)
  Sender: FDA-Public Use
  Company Number: ES-FRI-1000028765

PATIENT
  Age: 84 Year
  Sex: Male

DRUGS (4)
  1. ROFLUMILAST [Suspect]
     Dates: start: 20120110
  2. ATENOLOL [Concomitant]
     Dosage: 0.5 DF
  3. OMEPRAZOLE [Concomitant]
  4. NITROGLYCERIN [Concomitant]
     Dosage: 15 MG
     Route: 062

REACTIONS (1)
  - ASTHENIA [None]
